FAERS Safety Report 14449307 (Version 8)
Quarter: 2021Q4

REPORT INFORMATION
  Report Type: Report from Study
  Country: PL (occurrence: PL)
  Receive Date: 20180127
  Receipt Date: 20211228
  Transmission Date: 20220304
  Serious: Yes (Hospitalization)
  Sender: FDA-Public Use
  Company Number: PL-AMGEN-POLCT2018009963

PATIENT
  Age: 64 Year
  Sex: Male
  Weight: 90.6 kg

DRUGS (28)
  1. EVOLOCUMAB [Suspect]
     Active Substance: EVOLOCUMAB
     Indication: Dyslipidaemia
     Dosage: 1 MILLILITER
     Route: 058
     Dates: start: 20160903
  2. ATORVASTATIN [Concomitant]
     Active Substance: ATORVASTATIN
     Indication: Dyslipidaemia
     Dosage: 40 MILLIGRAM
     Dates: start: 20170816
  3. ASPIRIN [Concomitant]
     Active Substance: ASPIRIN
     Dosage: UNK
  4. INSULIN NOS [Concomitant]
     Active Substance: INSULIN NOS
     Dosage: UNK
  5. ENOXAPARIN [Concomitant]
     Active Substance: ENOXAPARIN
     Dosage: UNK
  6. CLOPIDOGREL [Concomitant]
     Active Substance: CLOPIDOGREL BISULFATE
     Dosage: 75 MILLIGRAM
     Dates: end: 20180816
  7. RAMIPRIL [Concomitant]
     Active Substance: RAMIPRIL
     Dosage: 2.5 MILLIGRAM
     Dates: start: 20170425, end: 20180108
  8. FUROSEMIDE [Concomitant]
     Active Substance: FUROSEMIDE
     Dosage: 1 UNK
     Dates: start: 20170425
  9. AMLODIPINE BESYLATE [Concomitant]
     Active Substance: AMLODIPINE BESYLATE
     Dosage: 10 MICROGRAM
     Dates: start: 20170425
  10. PANTOPRAZOLE SODIUM [Concomitant]
     Active Substance: PANTOPRAZOLE SODIUM
     Dosage: 20 MILLIGRAM
     Dates: start: 20170425, end: 201712
  11. HUMALOG [Concomitant]
     Active Substance: INSULIN LISPRO
     Dosage: 1 UNK
     Dates: start: 20170425
  12. METFORMIN HYDROCHLORIDE [Concomitant]
     Active Substance: METFORMIN HYDROCHLORIDE
     Dosage: 500 MILLIGRAM
     Dates: start: 20170425
  13. VINPOCETINE [Concomitant]
     Active Substance: VINPOCETINE
     Dosage: 5 MILLIGRAM
     Dates: start: 20170425, end: 20180516
  14. NEBILENIN [Concomitant]
     Dosage: 5 MILLIGRAM
     Dates: start: 20171120
  15. MAGNE B6 [Concomitant]
     Active Substance: MAGNESIUM\PYRIDOXINE
     Dosage: 1 UNK, UNK
     Dates: start: 20170425
  16. ALLOPURINOL [Concomitant]
     Active Substance: ALLOPURINOL
     Dosage: 300 MILLIGRAM
     Dates: start: 20170717, end: 20180729
  17. .ALPHA.-LIPOIC ACID [Concomitant]
     Active Substance: .ALPHA.-LIPOIC ACID
     Dosage: 600 MILLIGRAM
     Dates: start: 20170816, end: 20180123
  18. CLONIDINE [Concomitant]
     Active Substance: CLONIDINE
     Dosage: 75 MICROGRAM
     Dates: start: 20170708, end: 20180122
  19. DOXAZOSIN MESYLATE [Concomitant]
     Active Substance: DOXAZOSIN MESYLATE
     Dosage: 8 MILLIGRAM
     Dates: start: 20170809
  20. ASPIRIN [Concomitant]
     Active Substance: ASPIRIN
     Dosage: 150 MILLIGRAM
     Dates: start: 20171014, end: 20190116
  21. CILOSTAZOL [Concomitant]
     Active Substance: CILOSTAZOL
     Dosage: UNK
  22. CARDURA XL [Concomitant]
     Active Substance: DOXAZOSIN MESYLATE
     Dosage: 8 MILLIGRAM
     Dates: start: 20170809
  23. OMEPRAZOLE [Concomitant]
     Active Substance: OMEPRAZOLE
     Dosage: 20 MILLIGRAM
     Dates: start: 20171204, end: 20180620
  24. TRAZODONE HYDROCHLORIDE [Concomitant]
     Active Substance: TRAZODONE HYDROCHLORIDE
     Dosage: 37.5 MILLIGRAM
     Dates: start: 20171113, end: 201809
  25. SPIRONOLACTONE [Concomitant]
     Active Substance: SPIRONOLACTONE
     Dosage: 1 UNK
     Dates: start: 20171120, end: 20180715
  26. HUMULIN N [Concomitant]
     Active Substance: INSULIN HUMAN
     Dosage: 6 UNK
     Dates: start: 201704
  27. CILOZEK [Concomitant]
     Dosage: 100 MILLIGRAM
     Dates: start: 20171106, end: 201901
  28. CILOSTAZOLUM [Concomitant]
     Dosage: 100 MILLIGRAM
     Dates: start: 20171106, end: 201901

REACTIONS (1)
  - Carotid artery occlusion [Recovered/Resolved]

NARRATIVE: CASE EVENT DATE: 20180102
